FAERS Safety Report 12215112 (Version 1)
Quarter: 2016Q1

REPORT INFORMATION
  Report Type: Spontaneous
  Country: US (occurrence: US)
  Receive Date: 20160328
  Receipt Date: 20160328
  Transmission Date: 20160526
  Serious: Yes (Other)
  Sender: FDA-Public Use
  Company Number: ALCN2016US002191

PATIENT
  Sex: Female

DRUGS (1)
  1. TIMOLOL. [Suspect]
     Active Substance: TIMOLOL
     Indication: GLAUCOMA
     Dosage: UNK GTT, UNK
     Route: 047
     Dates: end: 2011

REACTIONS (2)
  - Stevens-Johnson syndrome [Recovered/Resolved]
  - Hypersensitivity [Recovered/Resolved]

NARRATIVE: CASE EVENT DATE: 2011
